FAERS Safety Report 13185579 (Version 2)
Quarter: 2017Q2

REPORT INFORMATION
  Report Type: Spontaneous
  Country: US (occurrence: US)
  Receive Date: 20170203
  Receipt Date: 20170404
  Transmission Date: 20170830
  Serious: Yes (Hospitalization)
  Sender: FDA-Public Use
  Company Number: US-PFIZER INC-2017047290

PATIENT
  Age: 49 Year
  Sex: Female

DRUGS (1)
  1. RAPAMUNE [Suspect]
     Active Substance: SIROLIMUS
     Indication: TRANSPLANT
     Dosage: 3 MG, 1X/DAY
     Route: 048
     Dates: start: 1996, end: 2015

REACTIONS (4)
  - Aneurysm [Unknown]
  - Haemorrhagic stroke [Unknown]
  - Memory impairment [Recovering/Resolving]
  - Cerebral haemorrhage [Unknown]

NARRATIVE: CASE EVENT DATE: 2012
